FAERS Safety Report 18582711 (Version 24)
Quarter: 2025Q4

REPORT INFORMATION
  Report Type: Report from Study
  Country: US (occurrence: US)
  Receive Date: 20201205
  Receipt Date: 20251103
  Transmission Date: 20260118
  Serious: Yes (Other)
  Sender: TAKEDA
  Company Number: US-TAKEDA-2020TUS053433

PATIENT
  Age: 32 Year
  Sex: Female
  Weight: 85 kg

DRUGS (15)
  1. HUMAN IMMUNOGLOBULIN G\HYALURONIDASE RECOMBINANT HUMAN [Suspect]
     Active Substance: HUMAN IMMUNOGLOBULIN G\HYALURONIDASE (HUMAN RECOMBINANT)
     Indication: Immunodeficiency common variable
     Dosage: 45 GRAM, Q4WEEKS
  2. HUMAN IMMUNOGLOBULIN G\HYALURONIDASE RECOMBINANT HUMAN [Suspect]
     Active Substance: HUMAN IMMUNOGLOBULIN G\HYALURONIDASE (HUMAN RECOMBINANT)
     Dosage: 45 GRAM, Q4WEEKS
     Dates: start: 20201020
  3. HUMAN IMMUNOGLOBULIN G\HYALURONIDASE RECOMBINANT HUMAN [Suspect]
     Active Substance: HUMAN IMMUNOGLOBULIN G\HYALURONIDASE (HUMAN RECOMBINANT)
     Dosage: 45 GRAM, Q4WEEKS
  4. PROAIR HFA [Concomitant]
     Active Substance: ALBUTEROL SULFATE
     Dosage: UNK
  5. SYNTHROID [Concomitant]
     Active Substance: LEVOTHYROXINE SODIUM
     Dosage: UNK
  6. NOVOLOG [Concomitant]
     Active Substance: INSULIN ASPART
     Dosage: UNK
  7. PROCARDIA [Concomitant]
     Active Substance: NIFEDIPINE
     Dosage: UNK
  8. LOSARTAN POTASSIUM [Concomitant]
     Active Substance: LOSARTAN POTASSIUM
     Dosage: UNK
  9. B active [Concomitant]
     Indication: Product used for unknown indication
     Dosage: UNK
  10. ACETAMINOPHEN [Concomitant]
     Active Substance: ACETAMINOPHEN
     Dosage: UNK
  11. LIDOCAINE [Concomitant]
     Active Substance: LIDOCAINE
     Dosage: UNK
  12. SODIUM CHLORIDE [Concomitant]
     Active Substance: SODIUM CHLORIDE
     Dosage: UNK
  13. EPINEPHRINE [Concomitant]
     Active Substance: EPINEPHRINE
     Dosage: UNK
  14. B12 active [Concomitant]
     Dosage: UNK
  15. CETIRIZINE HYDROCHLORIDE [Concomitant]
     Active Substance: CETIRIZINE HYDROCHLORIDE
     Dosage: UNK

REACTIONS (26)
  - Mastitis [Unknown]
  - Pneumonia [Unknown]
  - Bacterial infection [Unknown]
  - Sinusitis [Unknown]
  - Sinusitis fungal [Unknown]
  - Illness [Unknown]
  - Eye infection [Unknown]
  - Parainfluenzae virus infection [Unknown]
  - Infusion site discharge [Unknown]
  - Ear infection [Unknown]
  - Staphylococcal infection [Unknown]
  - Exposure to toxic agent [Unknown]
  - Suspected COVID-19 [Unknown]
  - Rhinovirus infection [Unknown]
  - Viral infection [Unknown]
  - Streptococcal infection [Unknown]
  - Weight decreased [Unknown]
  - Stress [Unknown]
  - Urinary tract infection [Unknown]
  - Blood urine present [Unknown]
  - Pharyngitis streptococcal [Unknown]
  - Influenza [Unknown]
  - Conjunctivitis [Unknown]
  - Anxiety [Unknown]
  - Nasopharyngitis [Unknown]
  - Influenza like illness [Unknown]

NARRATIVE: CASE EVENT DATE: 20210612
